FAERS Safety Report 9045702 (Version 1)
Quarter: 2013Q1

REPORT INFORMATION
  Report Type: Report from Study
  Country: US (occurrence: US)
  Receive Date: 20130131
  Receipt Date: 20130131
  Transmission Date: 20140127
  Serious: No
  Sender: FDA-Public Use
  Company Number: US-ABBOTT-12P-163-1013363-00

PATIENT
  Age: 58 None
  Sex: Female
  Weight: 96.25 kg

DRUGS (5)
  1. HUMIRA [Suspect]
     Indication: PSORIATIC ARTHROPATHY
     Dates: end: 201209
  2. HUMIRA [Suspect]
     Dates: start: 201211
  3. LEXAPRO [Concomitant]
     Indication: ANXIETY
  4. ENALAPRIL [Concomitant]
     Indication: HYPERTENSION
  5. WELLBUTRIN [Concomitant]
     Indication: PRODUCT USED FOR UNKNOWN INDICATION

REACTIONS (3)
  - Cough [Recovered/Resolved]
  - Ear infection [Recovered/Resolved]
  - Vulvovaginal mycotic infection [Recovered/Resolved]
